FAERS Safety Report 19139286 (Version 2)
Quarter: 2021Q2

REPORT INFORMATION
  Report Type: Spontaneous
  Country: JP (occurrence: JP)
  Receive Date: 20210415
  Receipt Date: 20210421
  Transmission Date: 20210717
  Serious: Yes (Other)
  Sender: FDA-Public Use
  Company Number: JP-ROCHE-2810596

PATIENT
  Age: 88 Year
  Sex: Female

DRUGS (7)
  1. LOXONIN [Concomitant]
     Active Substance: LOXOPROFEN SODIUM
  2. FOLIAMIN [Concomitant]
     Active Substance: FOLIC ACID
  3. CELECOX [Concomitant]
     Active Substance: CELECOXIB
  4. ACTEMRA [Suspect]
     Active Substance: TOCILIZUMAB
     Indication: RHEUMATOID ARTHRITIS
     Route: 058
  5. DENOTAS [Concomitant]
     Active Substance: CALCIUM CARBONATE\CHOLECALCIFEROL\MAGNESIUM CARBONATE
  6. OMEPRAZOLE. [Concomitant]
     Active Substance: OMEPRAZOLE
  7. METHOTREXATE. [Suspect]
     Active Substance: METHOTREXATE
     Indication: PRODUCT USED FOR UNKNOWN INDICATION
     Route: 065

REACTIONS (3)
  - Ulcerative keratitis [Recovering/Resolving]
  - Keratitis [Recovering/Resolving]
  - Petechiae [Unknown]

NARRATIVE: CASE EVENT DATE: 20210217
